FAERS Safety Report 6856158-8 (Version None)
Quarter: 2010Q3

REPORT INFORMATION
  Report Type: 
  Country: None (occurrence: None)
  Receive Date: 20100719
  Receipt Date: 20100708
  Transmission Date: 20110219
  Serious: Yes (Other)
  Sender: FDA-Public Use
  Company Number: PHHY2010GB21968

PATIENT
  Sex: Male

DRUGS (8)
  1. COMTESS [Suspect]
     Indication: PARKINSON'S DISEASE
     Dosage: 1 DF, QD
     Route: 048
     Dates: start: 20090401, end: 20100301
  2. AMINOPHYLLINE [Interacting]
     Dosage: 225 MG, BID
  3. SINEMET CR [Concomitant]
     Dosage: 2/2/3, 700 MG
  4. PREDNISOLONE [Concomitant]
     Dosage: 20 MG
  5. METHOTREXATE [Concomitant]
     Dosage: 10 MG WEEKLY
  6. ALENDRONATE SODIUM [Concomitant]
     Dosage: 70 MG
  7. ALBUTEROL [Concomitant]
  8. BUDESONIDE [Concomitant]

REACTIONS (3)
  - DRUG INTERACTION [None]
  - NAUSEA [None]
  - RESPIRATORY DISORDER [None]
